FAERS Safety Report 10435136 (Version 1)
Quarter: 2014Q3

REPORT INFORMATION
  Report Type: Spontaneous
  Country: US (occurrence: None)
  Receive Date: 20140822
  Receipt Date: 20140822
  Transmission Date: 20150326
  Serious: Yes (Other)
  Sender: FDA-Public Use
  Company Number: 2009S1007469C

PATIENT
  Age: 72 Year
  Sex: Male
  Weight: 65 kg

DRUGS (2)
  1. ZINC (ZINC) [Concomitant]
  2. PHOSPHO-SODA [Suspect]
     Active Substance: SODIUM PHOSPHATE, DIBASIC\SODIUM PHOSPHATE, MONOBASIC
     Indication: COLONOSCOPY
     Dosage: TOTAL, ORAL
     Route: 048
     Dates: start: 20050302, end: 20050303

REACTIONS (15)
  - Tooth disorder [None]
  - Post procedural complication [None]
  - Renal failure [None]
  - Nausea [None]
  - Tremor [None]
  - Nocturia [None]
  - Anxiety [None]
  - Rectal haemorrhage [None]
  - Hunger [None]
  - Hypothermia [None]
  - Dysgeusia [None]
  - Red blood cell count decreased [None]
  - Prostatic dysplasia [None]
  - Tooth deposit [None]
  - Increased appetite [None]

NARRATIVE: CASE EVENT DATE: 20050318
